FAERS Safety Report 16489500 (Version 1)
Quarter: 2019Q2

REPORT INFORMATION
  Report Type: Spontaneous
  Country: CA (occurrence: CA)
  Receive Date: 20190628
  Receipt Date: 20190628
  Transmission Date: 20190711
  Serious: Yes (Other)
  Sender: FDA-Public Use
  Company Number: CA-ORION CORPORATION ORION PHARMA-TREX2019-2038

PATIENT
  Age: 60 Year
  Sex: Female

DRUGS (34)
  1. ASAFEN [Concomitant]
     Route: 065
  2. MINERAL OIL W/PETROLATUM [Concomitant]
     Route: 065
  3. PANTOPRAZOLE SODIUM. [Concomitant]
     Active Substance: PANTOPRAZOLE SODIUM
     Route: 065
  4. ERGOCALCIFEROL. [Concomitant]
     Active Substance: ERGOCALCIFEROL
     Route: 065
  5. REFRESH LACRI LUBE [Concomitant]
     Route: 065
  6. APO FENO SUPER [Concomitant]
     Route: 065
  7. LEUCOVORIN. [Concomitant]
     Active Substance: LEUCOVORIN
     Route: 065
  8. VITAMIN B COMPLEX [Concomitant]
     Active Substance: CYANOCOBALAMIN\DEXPANTHENOL\NIACINAMIDE\PYRIDOXINE HYDROCHLORIDE\RIBOFLAVIN 5^-PHOSPHATE SODIUM\THIAMINE HYDROCHLORIDE\VITAMIN B COMPLEX
     Route: 065
  9. CALCIUM [Concomitant]
     Active Substance: CALCIUM
     Route: 065
  10. PREGABALIN. [Concomitant]
     Active Substance: PREGABALIN
     Route: 065
  11. ACETAMINOPHEN;CAFFEINE [Concomitant]
     Active Substance: ACETAMINOPHEN\CAFFEINE
     Route: 065
  12. LACRILUBE [Concomitant]
     Route: 065
  13. FENOFIBRATE. [Concomitant]
     Active Substance: FENOFIBRATE
     Route: 065
  14. ACETAMINOPHEN;PHENYLEPHRINE HYDROCHLORIDE [Concomitant]
     Route: 065
  15. CALCIUM PANTOTHENATE [Concomitant]
     Active Substance: CALCIUM PANTOTHENATE
     Route: 065
  16. ENBREL [Suspect]
     Active Substance: ETANERCEPT
     Route: 065
     Dates: start: 20140731
  17. PREDNISONE. [Concomitant]
     Active Substance: PREDNISONE
     Route: 065
  18. CELEBREX [Concomitant]
     Active Substance: CELECOXIB
     Route: 065
  19. CETAPHIL [Concomitant]
     Active Substance: AVOBENZONE\OCTOCRYLENE\TRICLOSAN
     Route: 065
  20. METHOTREXATE (TRADE NAME UNKNOWN) [Suspect]
     Active Substance: METHOTREXATE
     Route: 065
  21. ENBREL [Suspect]
     Active Substance: ETANERCEPT
     Indication: RHEUMATOID ARTHRITIS
     Route: 065
     Dates: start: 20121012
  22. PROLIA [Suspect]
     Active Substance: DENOSUMAB
     Indication: PRODUCT USED FOR UNKNOWN INDICATION
     Route: 065
  23. FOLIC ACID. [Concomitant]
     Active Substance: FOLIC ACID
     Route: 065
  24. METHOTREXATE (TRADE NAME UNKNOWN) [Suspect]
     Active Substance: METHOTREXATE
     Indication: PRODUCT USED FOR UNKNOWN INDICATION
     Route: 065
  25. PANTOLOC [Concomitant]
     Active Substance: PANTOPRAZOLE SODIUM
     Route: 065
  26. ELAVIL [Concomitant]
     Active Substance: AMITRIPTYLINE HYDROCHLORIDE
     Route: 065
  27. NICOTINAMIDE;PANTHENOL;PYRIDOXINE HYDROCHLORIDE;RIBOFLAVIN;THIAMINE HY [Concomitant]
     Route: 065
  28. ACTONEL [Concomitant]
     Active Substance: RISEDRONATE SODIUM
     Route: 065
  29. ESTRIOL [Concomitant]
     Active Substance: ESTRIOL
     Route: 065
  30. VITAMIN D [Concomitant]
     Active Substance: VITAMIN D NOS
     Route: 065
  31. FOLVITE [Concomitant]
     Active Substance: FOLIC ACID
     Route: 065
  32. ASPIRIN. [Concomitant]
     Active Substance: ASPIRIN
     Route: 065
  33. CHLORPHENAMINE MALEATE [Concomitant]
     Active Substance: CHLORPHENIRAMINE MALEATE
     Route: 065
  34. EPHEDRINE. [Concomitant]
     Active Substance: EPHEDRINE
     Route: 065

REACTIONS (35)
  - Epistaxis [Unknown]
  - Rheumatoid arthritis [Unknown]
  - Vomiting [Unknown]
  - Neurological symptom [Unknown]
  - Arthritis [Unknown]
  - Onychomadesis [Unknown]
  - Infection susceptibility increased [Unknown]
  - Rhinitis [Unknown]
  - Eyelid margin crusting [Unknown]
  - Faeces soft [Unknown]
  - Diarrhoea [Unknown]
  - Sjogren^s syndrome [Unknown]
  - Fatigue [Unknown]
  - Nasopharyngitis [Unknown]
  - Eye discharge [Unknown]
  - Conjunctivitis [Unknown]
  - Hot flush [Unknown]
  - Cellulitis [Unknown]
  - Eye infection [Unknown]
  - Eye degenerative disorder [Unknown]
  - Pyrexia [Unknown]
  - Eye irritation [Unknown]
  - Nasal dryness [Unknown]
  - Dysuria [Unknown]
  - Lacrimal structural disorder [Unknown]
  - Dry eye [Unknown]
  - Eye inflammation [Unknown]
  - Haemoptysis [Unknown]
  - Headache [Unknown]
  - Gastrointestinal disorder [Unknown]
  - Nausea [Unknown]
  - Hypoaesthesia [Unknown]
  - Rhinorrhoea [Unknown]
  - Visual acuity reduced [Unknown]
  - Osteoarthritis [Unknown]

NARRATIVE: CASE EVENT DATE: 201210
